FAERS Safety Report 12416336 (Version 1)
Quarter: 2016Q2

REPORT INFORMATION
  Report Type: Spontaneous
  Country: US (occurrence: US)
  Receive Date: 20160530
  Receipt Date: 20160530
  Transmission Date: 20160815
  Serious: Yes (Hospitalization, Other)
  Sender: FDA-Public Use
  Company Number: US-DRREDDYS-USA/USA/16/0080120

PATIENT
  Age: 62 Year
  Sex: Male

DRUGS (1)
  1. AZACITIDINE. [Suspect]
     Active Substance: AZACITIDINE
     Indication: ACUTE MYELOID LEUKAEMIA
     Dosage: DAYS 1-7 EVERY 28 DAYS FOR FIVE CYCLES
     Route: 058

REACTIONS (11)
  - Hyperhidrosis [Unknown]
  - Oedema [Unknown]
  - Troponin I increased [Recovering/Resolving]
  - Pericarditis [Recovered/Resolved]
  - Tachycardia [Unknown]
  - Left ventricular dysfunction [Unknown]
  - Pyrexia [Unknown]
  - Pericardial effusion [Unknown]
  - Chest pain [Recovering/Resolving]
  - Dyspnoea exertional [Recovering/Resolving]
  - Rash [Unknown]
